FAERS Safety Report 7872090-5 (Version None)
Quarter: 2011Q4

REPORT INFORMATION
  Report Type: 
  Country: None (occurrence: None)
  Receive Date: 20111029
  Receipt Date: 20110314
  Transmission Date: 20120403
  Serious: Yes (Hospitalization)
  Sender: FDA-Public Use
  Company Number: US-AMGEN-USASP2011014047

PATIENT
  Sex: Female

DRUGS (2)
  1. ENBREL [Suspect]
     Indication: RHEUMATOID ARTHRITIS
     Dates: start: 20081216, end: 20110225
  2. TREXALL [Concomitant]
     Dosage: 3 MG, QWK
     Dates: start: 20030101

REACTIONS (2)
  - PNEUMONIA [None]
  - BRONCHITIS [None]
